FAERS Safety Report 8769746 (Version 1)
Quarter: 2012Q4

REPORT INFORMATION
  Report Type: 
  Country: JP (occurrence: JP)
  Receive Date: 20120905
  Receipt Date: 20120905
  Transmission Date: 20130627
  Serious: Yes (Other)
  Sender: FDA-Public Use
  Company Number: JP-009507513-2012SP020903

PATIENT

DRUGS (27)
  1. PEGINTERFERON ALFA-2B [Suspect]
     Indication: HEPATITIS C
     Dosage: 1.5 Microgram per kilogram, qw
     Route: 058
     Dates: start: 20120124, end: 20120412
  2. PEGINTERFERON ALFA-2B [Suspect]
     Dosage: 0.75 Microgram per kilogram, qw
     Route: 058
     Dates: start: 20120413, end: 20120510
  3. PEGINTERFERON ALFA-2B [Suspect]
     Dosage: 1.0 Microgram per kilogram, qw
     Route: 058
     Dates: start: 20120517, end: 20120705
  4. REBETOL [Suspect]
     Indication: HEPATITIS C
     Dosage: 1000 mg, QD
     Route: 048
     Dates: start: 20120124, end: 20120215
  5. REBETOL [Suspect]
     Dosage: 400 mg, QD
     Route: 048
     Dates: start: 20120216, end: 20120222
  6. REBETOL [Suspect]
     Dosage: 200 mg, QD
     Route: 048
     Dates: start: 20120223, end: 20120314
  7. REBETOL [Suspect]
     Dosage: 400 mg, QD
     Route: 048
     Dates: start: 20120315, end: 20120523
  8. REBETOL [Suspect]
     Dosage: 600 mg, qd
     Route: 048
     Dates: start: 20120524, end: 20120711
  9. TELAVIC [Suspect]
     Indication: HEPATITIS C
     Dosage: 2250 mg, QD
     Route: 048
     Dates: start: 20120124, end: 20120328
  10. TELAVIC [Suspect]
     Dosage: 1500 mg, QD
     Route: 048
     Dates: start: 20120329, end: 20120405
  11. URSODIOL [Suspect]
     Indication: HEPATITIS C
     Dosage: 900 mg, QD
     Route: 048
     Dates: start: 20101005, end: 20120307
  12. DEPAS [Concomitant]
     Indication: ANXIETY DISORDER
     Dosage: 0.5 mg, qd
     Route: 048
  13. DEPAS [Concomitant]
     Indication: INSOMNIA
  14. OMERAP [Concomitant]
     Indication: PROPHYLAXIS
     Dosage: 20 mg, qd
     Route: 048
     Dates: end: 20120228
  15. ADETPHOS [Concomitant]
     Indication: PROPHYLAXIS
     Dosage: 40 mg, qd
     Route: 048
     Dates: start: 20120228
  16. YOUCOBAL (MECOBALAMIN) [Concomitant]
     Indication: PROPHYLAXIS
     Dosage: 0.5 mg, qd
     Route: 048
     Dates: end: 20120208
  17. HALCION [Concomitant]
     Indication: PROPHYLAXIS
     Dosage: 0.25 mg, qd
     Route: 048
     Dates: end: 20120130
  18. ROHYPNOL [Concomitant]
     Indication: INSOMNIA
     Dosage: 4 mg, qd
     Route: 048
  19. CALBLOCK [Concomitant]
     Indication: HYPERTENSION
     Dosage: 16 mg, qd
     Route: 048
  20. BLOPRESS [Concomitant]
     Indication: HYPERTENSION
     Dosage: 8 mg, qd
     Route: 048
     Dates: end: 20120216
  21. BLOPRESS [Concomitant]
     Dosage: 2 mg, qd
     Route: 048
     Dates: start: 20120217, end: 20120315
  22. NEOPHAGEN C TABLETS [Concomitant]
     Indication: HEPATITIS C
     Dosage: 4 DF, qd
     Route: 048
     Dates: end: 20120207
  23. BIO-THREE [Concomitant]
     Indication: PROPHYLAXIS
     Dosage: 4 DF, qd
     Route: 048
     Dates: start: 20120123, end: 20120208
  24. LENDORMIN [Concomitant]
     Indication: INSOMNIA
     Dosage: 0.25 mg, qd
     Route: 048
     Dates: start: 20120127
  25. PARIET [Concomitant]
     Indication: PROPHYLAXIS
     Dosage: 10 mg, qd
     Route: 048
     Dates: start: 20120209
  26. POLARAMINE (DEXCHLORPHENIRAMINE MALEATE) [Concomitant]
     Dosage: 4 mg, qd
     Dates: start: 20120308
  27. FLOMOX [Concomitant]
     Indication: PROPHYLAXIS
     Dosage: 300 mg, qd
     Route: 048
     Dates: start: 20120404, end: 20120408

REACTIONS (1)
  - Rash [Recovering/Resolving]
